FAERS Safety Report 6763258-X (Version None)
Quarter: 2010Q2

REPORT INFORMATION
  Report Type: 
  Country: None (occurrence: None)
  Receive Date: 20100610
  Receipt Date: 20100527
  Transmission Date: 20101027
  Serious: Yes (Life-Threatening)
  Sender: FDA-Public Use
  Company Number: GB-RANBAXY-2010RR-34321

PATIENT
  Age: 89 Year
  Sex: Female

DRUGS (7)
  1. CEFUROXIME [Suspect]
     Indication: SEPSIS
     Dosage: 500 MG, TID
     Route: 042
     Dates: start: 20100517, end: 20100517
  2. ASPIRIN [Concomitant]
  3. CALCICHEW D3 [Concomitant]
  4. CARBOCISTEINE [Concomitant]
  5. DIGOXIN [Concomitant]
  6. FRUSEMIDE [Concomitant]
  7. RAMIPRIL [Concomitant]

REACTIONS (1)
  - BRONCHOSPASM [None]
